FAERS Safety Report 4500417-0 (Version None)
Quarter: 2004Q3

REPORT INFORMATION
  Report Type: 
  Country: None (occurrence: None)
  Receive Date: 20040928
  Receipt Date: 20040802
  Transmission Date: 20050211
  Serious: No
  Sender: FDA-Public Use
  Company Number: 04P-163-0268667-00

PATIENT
  Age: 74 Year
  Sex: Female

DRUGS (5)
  1. HUMIRA [Suspect]
     Indication: RHEUMATOID ARTHRITIS
     Dosage: 40 MG 1 IN 2 WK SUBCUTANEOUS
     Route: 058
     Dates: start: 20040201, end: 20040701
  2. QUINAPRIL HYDROCHLORIDE [Concomitant]
  3. METAFORAL [Concomitant]
  4. ZOCOR [Concomitant]
  5. METHOTREXATE [Concomitant]

REACTIONS (1)
  - INJECTION SITE SWELLING [None]
